FAERS Safety Report 8329396 (Version 7)
Quarter: 2012Q4

REPORT INFORMATION
  Report Type: 
  Country: US (occurrence: US)
  Receive Date: 20120110
  Receipt Date: 20121228
  Transmission Date: 20130627
  Serious: Yes (Hospitalization, Disabling, Other)
  Sender: FDA-Public Use
  Company Number: US-009507513-1201USA00807

PATIENT

DRUGS (10)
  1. FOSAMAX [Suspect]
     Indication: OSTEOPENIA
     Dosage: 70 mg, QW
     Route: 048
     Dates: start: 20020731, end: 200612
  2. FOSAMAX [Suspect]
     Indication: OSTEOPOROSIS
  3. ACTONEL [Suspect]
     Indication: OSTEOPENIA
     Dosage: 35 mg, UNK
     Route: 048
     Dates: start: 200701, end: 200811
  4. ACTONEL [Suspect]
     Indication: OSTEOPOROSIS
     Dosage: 150 mg, UNK
     Route: 048
     Dates: start: 200812, end: 201003
  5. CALTRATE [Concomitant]
     Dosage: 600 mg, UNK
     Dates: start: 1990
  6. CALCIUM (UNSPECIFIED) [Suspect]
     Dosage: 600-1500
     Dates: start: 1990, end: 200608
  7. MK-9278 [Concomitant]
     Dosage: UNK UNK, qd
     Dates: start: 1970
  8. VITAMIN D (UNSPECIFIED) [Concomitant]
     Dosage: 400-800
     Dates: start: 200207, end: 200708
  9. ASCORBIC ACID [Concomitant]
     Dates: start: 200303, end: 200910
  10. VITAMIN E [Concomitant]
     Dosage: 400 IU, UNK
     Dates: start: 200303, end: 200910

REACTIONS (22)
  - Bone density decreased [Unknown]
  - Joint dislocation [Not Recovered/Not Resolved]
  - Radius fracture [Unknown]
  - Humerus fracture [Not Recovered/Not Resolved]
  - Femur fracture [Unknown]
  - Femur fracture [Recovered/Resolved]
  - Femur fracture [Recovered/Resolved]
  - Vein disorder [Not Recovered/Not Resolved]
  - Postmenopausal haemorrhage [Unknown]
  - Chondropathy [Unknown]
  - Fall [Unknown]
  - Ligament rupture [Not Recovered/Not Resolved]
  - Fracture nonunion [Not Recovered/Not Resolved]
  - Foot fracture [Unknown]
  - Breast cyst [Unknown]
  - Dyslipidaemia [Unknown]
  - Menopause [Unknown]
  - Osteoma [Not Recovered/Not Resolved]
  - Hypercalciuria [Recovered/Resolved]
  - Hypertension [Unknown]
  - Chondroplasty [Unknown]
  - Arthralgia [Unknown]
